FAERS Safety Report 8525395-9 (Version None)
Quarter: 2012Q3

REPORT INFORMATION
  Report Type: 
  Country: None (occurrence: None)
  Receive Date: 20120720
  Receipt Date: 20120711
  Transmission Date: 20120928
  Serious: Yes (Other)
  Sender: FDA-Public Use
  Company Number: US-ASTRAZENECA-2012SE18608

PATIENT
  Age: 61 Year
  Sex: Male

DRUGS (1)
  1. NEXIUM [Suspect]
     Route: 048

REACTIONS (9)
  - VOCAL CORD DISORDER [None]
  - RETINAL TEAR [None]
  - ADVERSE EVENT [None]
  - DYSPEPSIA [None]
  - RETINAL DISORDER [None]
  - GASTROOESOPHAGEAL REFLUX DISEASE [None]
  - DIABETES MELLITUS [None]
  - DRUG DOSE OMISSION [None]
  - BLINDNESS [None]
